FAERS Safety Report 8415849-8 (Version None)
Quarter: 2012Q2

REPORT INFORMATION
  Report Type: 
  Country: None (occurrence: None)
  Receive Date: 20120530
  Receipt Date: 20120511
  Transmission Date: 20120825
  Serious: Yes (Hospitalization)
  Sender: FDA-Public Use
  Company Number: JPI-P-021454

PATIENT
  Age: 38 Year
  Sex: Female
  Weight: 56.6996 kg

DRUGS (4)
  1. XYREM [Suspect]
     Indication: NARCOLEPSY
     Dosage: ORAL
     Route: 048
     Dates: start: 20060501
  2. VITAMIN D [Concomitant]
  3. LAMOTRIGINE [Concomitant]
  4. SERTRALINE HYDROCHLORIDE [Concomitant]

REACTIONS (1)
  - INTERVERTEBRAL DISC PROTRUSION [None]
